FAERS Safety Report 8218966-0 (Version None)
Quarter: 2012Q1

REPORT INFORMATION
  Report Type: 
  Country: None (occurrence: None)
  Receive Date: 20120319
  Receipt Date: 20120307
  Transmission Date: 20120608
  Serious: Yes (Congenital Anomaly)
  Sender: FDA-Public Use
  Company Number: JP-MERCK-1203USA01277B1

PATIENT
  Sex: Male
  Weight: 2 kg

DRUGS (1)
  1. DEXAMETHASONE [Suspect]
     Indication: CONGENITAL ABNORMALITY PROPHYLAXIS
     Route: 064

REACTIONS (4)
  - SPEECH DISORDER DEVELOPMENTAL [None]
  - MATERNAL DRUGS AFFECTING FOETUS [None]
  - OLIGOHYDRAMNIOS [None]
  - FOETAL GROWTH RESTRICTION [None]
